FAERS Safety Report 18656455 (Version 1)
Quarter: 2020Q4

REPORT INFORMATION
  Report Type: Spontaneous
  Country: US (occurrence: US)
  Receive Date: 20201223
  Receipt Date: 20201223
  Transmission Date: 20210114
  Serious: Yes (Other)
  Sender: FDA-Public Use
  Company Number: US-PURDUE-USA-2020-0179147

PATIENT
  Sex: Female

DRUGS (5)
  1. OXYCODONE HCL CR TABLETS (SIMILAR TO NDA 22-272) [Suspect]
     Active Substance: OXYCODONE HYDROCHLORIDE
     Indication: PRODUCT USED FOR UNKNOWN INDICATION
     Dosage: 30 MG, TID
     Route: 048
  2. OXYCODONE/ ACETAMINOPHEN TABLETS [Suspect]
     Active Substance: ACETAMINOPHEN\OXYCODONE HYDROCHLORIDE
     Indication: PRODUCT USED FOR UNKNOWN INDICATION
     Dosage: UNKNOWN
     Route: 048
  3. OXYCONTIN [Suspect]
     Active Substance: OXYCODONE HYDROCHLORIDE
     Indication: PRODUCT USED FOR UNKNOWN INDICATION
     Dosage: UNKNOWN
     Route: 048
  4. OXYCODONE HCL CR TABLETS (SIMILAR TO NDA 22-272) [Suspect]
     Active Substance: OXYCODONE HYDROCHLORIDE
     Dosage: 30 MG, Q4H
  5. HYDROCODONE BITARTRATE AND ACETAMINOPHEN [Suspect]
     Active Substance: ACETAMINOPHEN\HYDROCODONE BITARTRATE
     Indication: PRODUCT USED FOR UNKNOWN INDICATION
     Dosage: UNKNOWN
     Route: 048

REACTIONS (39)
  - Overdose [Unknown]
  - Somnolence [Unknown]
  - Emotional distress [Unknown]
  - Tremor [Unknown]
  - Suicidal ideation [Unknown]
  - Fear [Unknown]
  - Paraesthesia [Unknown]
  - Dysphemia [Unknown]
  - Chills [Unknown]
  - Hyperhidrosis [Unknown]
  - Memory impairment [Unknown]
  - Loss of consciousness [Unknown]
  - Impaired driving ability [Unknown]
  - Panic attack [Unknown]
  - Restlessness [Unknown]
  - Disorientation [Unknown]
  - Exposure during pregnancy [Unknown]
  - Drug withdrawal syndrome [Unknown]
  - Insomnia [Unknown]
  - Diarrhoea [Unknown]
  - Hypertension [Unknown]
  - Pain [Unknown]
  - Headache [Unknown]
  - Stress [Unknown]
  - Drug tolerance [Unknown]
  - Disturbance in attention [Unknown]
  - Dizziness [Unknown]
  - Tinnitus [Unknown]
  - Depression [Unknown]
  - Drug dependence [Unknown]
  - Anxiety [Unknown]
  - Vomiting [Unknown]
  - Hallucination [Unknown]
  - Abortion induced complete [Recovered/Resolved]
  - Hypersomnia [Unknown]
  - Decreased interest [Unknown]
  - Tachyphrenia [Unknown]
  - Chest discomfort [Unknown]
  - Pyrexia [Unknown]

NARRATIVE: CASE EVENT DATE: 201012
